FAERS Safety Report 21045232 (Version 1)
Quarter: 2022Q3

REPORT INFORMATION
  Report Type: Spontaneous
  Country: HR (occurrence: HR)
  Receive Date: 20220705
  Receipt Date: 20220705
  Transmission Date: 20221027
  Serious: Yes (Life-Threatening, Hospitalization)
  Sender: FDA-Public Use
  Company Number: None

PATIENT
  Age: 38 Year
  Sex: Male
  Weight: 78 kg

DRUGS (5)
  1. PALIPERIDONE PALMITATE [Suspect]
     Active Substance: PALIPERIDONE PALMITATE
     Indication: Psychotic disorder
     Route: 030
     Dates: start: 20220326, end: 20220404
  2. PALIPERIDONE PALMITATE [Suspect]
     Active Substance: PALIPERIDONE PALMITATE
     Route: 030
     Dates: start: 202204
  3. PALIPERIDONE PALMITATE [Suspect]
     Active Substance: PALIPERIDONE PALMITATE
  4. PROMAZINE HYDROCHLORIDE [Suspect]
     Active Substance: PROMAZINE HYDROCHLORIDE
     Indication: Psychotic disorder
     Route: 048
     Dates: start: 2022, end: 2022
  5. NORMABEL [Concomitant]
     Active Substance: DIAZEPAM
     Indication: Psychotic disorder
     Route: 048
     Dates: start: 2022, end: 2022

REACTIONS (16)
  - Eye movement disorder [Unknown]
  - Movement disorder [Unknown]
  - Feeling drunk [Unknown]
  - Depressed level of consciousness [Unknown]
  - Gait disturbance [Unknown]
  - Application site pain [Unknown]
  - Speech disorder [Unknown]
  - Aggression [Unknown]
  - Memory impairment [Unknown]
  - Insomnia [Unknown]
  - Dizziness [Unknown]
  - Disturbance in attention [Unknown]
  - Psychotic disorder [Unknown]
  - Confusional state [Unknown]
  - Mental impairment [Unknown]
  - Anxiety [Unknown]

NARRATIVE: CASE EVENT DATE: 20220326
